FAERS Safety Report 4432674-3 (Version None)
Quarter: 2004Q3

REPORT INFORMATION
  Report Type: 
  Country: None (occurrence: None)
  Receive Date: 20040820
  Receipt Date: 20040726
  Transmission Date: 20050211
  Serious: Yes (Hospitalization)
  Sender: FDA-Public Use
  Company Number: MEDI-0002142(0)

PATIENT
  Age: 53 Year
  Sex: Male
  Weight: 76.2043 kg

DRUGS (22)
  1. ETHYOL [Suspect]
     Indication: CHEMOTHERAPY
     Dosage: 500 MG, 1 IN 1 D, SUBCUTANEOUS
     Route: 058
     Dates: start: 20040614, end: 20040628
  2. ETHYOL [Suspect]
     Indication: RADIOTHERAPY
     Dosage: 500 MG, 1 IN 1 D, SUBCUTANEOUS
     Route: 058
     Dates: start: 20040614, end: 20040628
  3. ETHYOL [Suspect]
     Indication: CHEMOTHERAPY
     Dosage: 500 MG, 1 IN 1 D, SUBCUTANEOUS
     Route: 058
     Dates: start: 20040706, end: 20040707
  4. ETHYOL [Suspect]
     Indication: RADIOTHERAPY
     Dosage: 500 MG, 1 IN 1 D, SUBCUTANEOUS
     Route: 058
     Dates: start: 20040706, end: 20040707
  5. RADIATION THERAPY [Concomitant]
  6. CISPLATIN [Concomitant]
  7. ZOFRAN [Concomitant]
  8. ATIVAN [Concomitant]
  9. NYSTATIN [Concomitant]
  10. ATROVENT [Concomitant]
  11. DEPAKOTE [Concomitant]
  12. ADVAIR DISKUS (FLUTICASONE PROPIONATE, SALMETEROL XINAFOATE) [Concomitant]
  13. COMBIVENT [Concomitant]
  14. OSMOLITE (VITAMINS NOS, MINERALS NOS, CARBOHYDRATES NOS, PROTEINS NOS, [Concomitant]
  15. MAGNESIUM SULFATE [Concomitant]
  16. MANNITOL [Concomitant]
  17. DECADRON [Concomitant]
  18. ALBUTEROL [Concomitant]
  19. PROTONIX [Concomitant]
  20. PREVACID [Concomitant]
  21. POTASSIUM CHLORIDE [Concomitant]
  22. OXYCODONE HCL [Concomitant]

REACTIONS (7)
  - BRONCHITIS ACUTE [None]
  - DEHYDRATION [None]
  - INJECTION SITE REACTION [None]
  - NAUSEA [None]
  - PYREXIA [None]
  - THROMBOCYTOPENIA [None]
  - VOMITING [None]
